FAERS Safety Report 9912426 (Version 2)
Quarter: 2014Q1

REPORT INFORMATION
  Report Type: Spontaneous
  Country: BR (occurrence: BR)
  Receive Date: 20140220
  Receipt Date: 20140225
  Transmission Date: 20141002
  Serious: Yes (Other)
  Sender: FDA-Public Use
  Company Number: BR-PFIZER INC-2014047068

PATIENT
  Sex: Female

DRUGS (3)
  1. DOSTINEX [Suspect]
     Indication: PITUITARY TUMOUR
     Dosage: 1 TABLET, TWICE PER WEEK (ON WEDNESDAYS AND ON SATURDAYS), AT NIGHT
     Route: 048
     Dates: start: 20140102, end: 201402
  2. DOSTINEX [Suspect]
     Indication: BLOOD PROLACTIN ABNORMAL
  3. GLIBENCLAMIDE [Concomitant]
     Indication: BLOOD GLUCOSE ABNORMAL
     Dosage: UNSPECIFIED DOSE, THREE TIMES A DAY

REACTIONS (13)
  - Pain [Recovered/Resolved]
  - Gait disturbance [Recovered/Resolved]
  - Dysstasia [Recovered/Resolved]
  - Muscle atrophy [Unknown]
  - Bedridden [Not Recovered/Not Resolved]
  - Activities of daily living impaired [Not Recovered/Not Resolved]
  - Blood pressure fluctuation [Recovered/Resolved]
  - Blood glucose fluctuation [Recovered/Resolved]
  - Feeling abnormal [Recovered/Resolved]
  - Labyrinthitis [Not Recovered/Not Resolved]
  - Malaise [Recovered/Resolved]
  - Dizziness [Recovered/Resolved]
  - Pain in extremity [Not Recovered/Not Resolved]
